FAERS Safety Report 22649668 (Version 2)
Quarter: 2024Q3

REPORT INFORMATION
  Report Type: Report from Study
  Country: IL (occurrence: IL)
  Receive Date: 20230628
  Receipt Date: 20240912
  Transmission Date: 20241017
  Serious: Yes (Life-Threatening, Hospitalization)
  Sender: SANOFI AVENTIS
  Company Number: IL-SA-SAC20221202001106

PATIENT
  Sex: Male

DRUGS (2)
  1. INVESTIGATIONAL PRODUCT [Suspect]
     Active Substance: INVESTIGATIONAL PRODUCT
     Indication: Dermatitis atopic
     Dosage: UNK
     Route: 065
  2. DERMACOMBIN [Concomitant]
     Indication: Dermatitis atopic
     Dosage: UNK
     Route: 061

REACTIONS (1)
  - Dyspnoea [Recovered/Resolved]

NARRATIVE: CASE EVENT DATE: 20210315
